FAERS Safety Report 6878153-5 (Version None)
Quarter: 2010Q2

REPORT INFORMATION
  Report Type: 
  Country: None (occurrence: None)
  Receive Date: 20100623
  Receipt Date: 20080609
  Transmission Date: 20101027
  Serious: No
  Sender: FDA-Public Use
  Company Number: 2008-00096

PATIENT
  Age: 55 Year
  Sex: Female
  Weight: 79.3795 kg

DRUGS (1)
  1. ZICAM COLD REMEDY RAPIDMELTS [Suspect]
     Dosage: 6 DOSE X 3 DAYS
     Dates: start: 20080509, end: 20080512

REACTIONS (3)
  - AGEUSIA [None]
  - ANOSMIA [None]
  - WEIGHT DECREASED [None]
